FAERS Safety Report 8749239 (Version 3)
Quarter: 2012Q4

REPORT INFORMATION
  Report Type: Report from Study
  Country: US (occurrence: None)
  Receive Date: 20120808
  Receipt Date: 20120927
  Transmission Date: 20130627
  Serious: Yes (Death, Life-Threatening, Hospitalization)
  Sender: FDA-Public Use
  Company Number: 137257

PATIENT
  Age: 54 Year
  Sex: Male
  Weight: 65 kg

DRUGS (1)
  1. ETOPOSIDE [Suspect]
     Indication: NON-SMALL CELL LUNG CANCER STAGE III
     Dosage: 50MG/M2 IV
     Route: 042
     Dates: start: 20120604, end: 20120608

REACTIONS (18)
  - Hypovolaemic shock [None]
  - Tracheal haemorrhage [None]
  - Sepsis [None]
  - Febrile neutropenia [None]
  - Hyponatraemia [None]
  - Renal failure acute [None]
  - Pneumonia [None]
  - Procalcitonin increased [None]
  - Respiratory distress [None]
  - Pseudomonas infection [None]
  - Haemodialysis [None]
  - Pericardial effusion [None]
  - Pulmonary mass [None]
  - Lung consolidation [None]
  - Bradycardia [None]
  - Cardiac arrest [None]
  - Haemorrhage [None]
  - Jugular vein distension [None]
